FAERS Safety Report 18714404 (Version 2)
Quarter: 2021Q3

REPORT INFORMATION
  Report Type: Report from Study
  Country: FR (occurrence: FR)
  Receive Date: 20210107
  Receipt Date: 20210717
  Transmission Date: 20211014
  Serious: Yes (Hospitalization, Other)
  Sender: FDA-Public Use
  Company Number: FR-TAKEDA-FR201729634

PATIENT
  Age: 62 Year
  Sex: Female
  Weight: 58.3 kg

DRUGS (56)
  1. TEDUGLUTIDE [Suspect]
     Active Substance: TEDUGLUTIDE
     Indication: SHORT-BOWEL SYNDROME
     Dosage: 0.05 MG/KG, UNK
     Route: 065
     Dates: start: 20160404, end: 20160911
  2. TEDUGLUTIDE [Suspect]
     Active Substance: TEDUGLUTIDE
     Dosage: 0.05 MG/KG, UNK
     Route: 065
     Dates: start: 20160912, end: 20161206
  3. TEDUGLUTIDE [Suspect]
     Active Substance: TEDUGLUTIDE
     Dosage: 0.05 MG/KG, UNK
     Route: 065
     Dates: start: 20160912, end: 20161206
  4. TEDUGLUTIDE [Suspect]
     Active Substance: TEDUGLUTIDE
     Dosage: 0.05 MG/KG, UNK
     Route: 065
     Dates: start: 20170217
  5. TEDUGLUTIDE [Suspect]
     Active Substance: TEDUGLUTIDE
     Dosage: 0.05 MG/KG, UNK
     Route: 065
     Dates: start: 20170217
  6. TEDUGLUTIDE [Suspect]
     Active Substance: TEDUGLUTIDE
     Dosage: 3.0 MILLIGRAM,(0.05MG/KG), QD
     Route: 065
     Dates: start: 20160404, end: 20160824
  7. TEDUGLUTIDE [Suspect]
     Active Substance: TEDUGLUTIDE
     Dosage: 2.8 MILLIGRAM,(0.05MG/KG), QD
     Route: 065
     Dates: start: 20160825, end: 20160908
  8. TEDUGLUTIDE [Suspect]
     Active Substance: TEDUGLUTIDE
     Dosage: 2.8 MILLIGRAM,(0.05MG/KG), QD
     Route: 065
     Dates: start: 20160825, end: 20160908
  9. TEDUGLUTIDE [Suspect]
     Active Substance: TEDUGLUTIDE
     Dosage: 2.8 MILLIGRAM,(0.05MG/KG), QD
     Route: 065
     Dates: start: 20160915, end: 20161107
  10. TEDUGLUTIDE [Suspect]
     Active Substance: TEDUGLUTIDE
     Dosage: 2.8 MILLIGRAM,(0.05MG/KG), QD
     Route: 065
     Dates: start: 20170214, end: 20170220
  11. TEDUGLUTIDE [Suspect]
     Active Substance: TEDUGLUTIDE
     Dosage: 2.8 MILLIGRAM,(0.05MG/KG), QD
     Route: 065
     Dates: start: 20170214, end: 20170220
  12. CALCIUM CARBONATE. [Concomitant]
     Active Substance: CALCIUM CARBONATE
     Indication: SHORT-BOWEL SYNDROME
     Dosage: 500 MILLIGRAM, QD
     Route: 048
     Dates: start: 20200214
  13. TEDUGLUTIDE [Suspect]
     Active Substance: TEDUGLUTIDE
     Dosage: 3.0 MILLIGRAM,(0.05MG/KG), QD
     Route: 065
     Dates: start: 20160404, end: 20160824
  14. TEDUGLUTIDE [Suspect]
     Active Substance: TEDUGLUTIDE
     Dosage: 2.6 MILLIGRAM,(0.05MG/KG), QD
     Route: 065
     Dates: start: 20160909, end: 20160914
  15. TEDUGLUTIDE [Suspect]
     Active Substance: TEDUGLUTIDE
     Dosage: 2.4 MILLIGRAM,(0.05MG/KG), QD
     Route: 065
     Dates: start: 20181130
  16. CONTRAMAL [Concomitant]
     Active Substance: TRAMADOL HYDROCHLORIDE
     Indication: BACK PAIN
  17. MAGNESIUM SULFATE. [Concomitant]
     Active Substance: MAGNESIUM SULFATE
     Indication: SHORT-BOWEL SYNDROME
     Dosage: 15000 MILLIGRAM, CONTINUOS RUNNING
     Route: 042
     Dates: start: 201911
  18. TEDUGLUTIDE [Suspect]
     Active Substance: TEDUGLUTIDE
     Indication: SHORT-BOWEL SYNDROME
     Dosage: 0.05 MG/KG, UNK
     Route: 065
     Dates: start: 20160404, end: 20160911
  19. TEDUGLUTIDE [Suspect]
     Active Substance: TEDUGLUTIDE
     Dosage: 0.05 MG/KG, UNK
     Route: 065
     Dates: start: 20160912, end: 20161206
  20. TEDUGLUTIDE [Suspect]
     Active Substance: TEDUGLUTIDE
     Dosage: 0.05 MG/KG, UNK
     Route: 065
     Dates: start: 20170217
  21. TEDUGLUTIDE [Suspect]
     Active Substance: TEDUGLUTIDE
     Dosage: 3.0 MILLIGRAM,(0.05MG/KG), QD
     Route: 065
     Dates: start: 20160404, end: 20160824
  22. TEDUGLUTIDE [Suspect]
     Active Substance: TEDUGLUTIDE
     Dosage: 2.6 MILLIGRAM,(0.05MG/KG), QD
     Route: 065
     Dates: start: 20161108, end: 20161206
  23. TEDUGLUTIDE [Suspect]
     Active Substance: TEDUGLUTIDE
     Dosage: 2.6 MILLIGRAM,(0.05MG/KG), QD
     Route: 065
     Dates: start: 20161108, end: 20161206
  24. TEDUGLUTIDE [Suspect]
     Active Substance: TEDUGLUTIDE
     Dosage: 2.6 MILLIGRAM,(0.05MG/KG), QD
     Route: 065
     Dates: start: 20170303, end: 20170411
  25. TEDUGLUTIDE [Suspect]
     Active Substance: TEDUGLUTIDE
     Dosage: 2.6 MILLIGRAM,(0.05MG/KG), QD
     Route: 065
     Dates: start: 20170303, end: 20170411
  26. TEDUGLUTIDE [Suspect]
     Active Substance: TEDUGLUTIDE
     Dosage: 2.4 MILLIGRAM,(0.05MG/KG), QD
     Route: 065
     Dates: start: 20181130
  27. BACTRIM [Concomitant]
     Active Substance: SULFAMETHOXAZOLE\TRIMETHOPRIM
     Indication: SEPSIS
  28. TEDUGLUTIDE [Suspect]
     Active Substance: TEDUGLUTIDE
     Dosage: 0.05 MG/KG, UNK
     Route: 065
     Dates: start: 20160912, end: 20161206
  29. TEDUGLUTIDE [Suspect]
     Active Substance: TEDUGLUTIDE
     Dosage: 3.0 MILLIGRAM,(0.05MG/KG), QD
     Route: 065
     Dates: start: 20160404, end: 20160824
  30. TEDUGLUTIDE [Suspect]
     Active Substance: TEDUGLUTIDE
     Dosage: 2.6 MILLIGRAM,(0.05MG/KG), QD
     Route: 065
     Dates: start: 20161108, end: 20161206
  31. TEDUGLUTIDE [Suspect]
     Active Substance: TEDUGLUTIDE
     Dosage: 2.4 MILLIGRAM,(0.05MG/KG), QD
     Route: 065
     Dates: start: 20181130
  32. COUMADINE [Concomitant]
     Active Substance: WARFARIN SODIUM
     Indication: THROMBOSIS PROPHYLAXIS
  33. TEDUGLUTIDE [Suspect]
     Active Substance: TEDUGLUTIDE
     Dosage: 2.8 MILLIGRAM,(0.05MG/KG), QD
     Route: 065
     Dates: start: 20160825, end: 20160908
  34. TEDUGLUTIDE [Suspect]
     Active Substance: TEDUGLUTIDE
     Dosage: 2.6 MILLIGRAM,(0.05MG/KG), QD
     Route: 065
     Dates: start: 20160909, end: 20160914
  35. TEDUGLUTIDE [Suspect]
     Active Substance: TEDUGLUTIDE
     Dosage: 2.8 MILLIGRAM,(0.05MG/KG), QD
     Route: 065
     Dates: start: 20160915, end: 20161107
  36. TEDUGLUTIDE [Suspect]
     Active Substance: TEDUGLUTIDE
     Dosage: 2.8 MILLIGRAM,(0.05MG/KG), QD
     Route: 065
     Dates: start: 20170214, end: 20170220
  37. TEDUGLUTIDE [Suspect]
     Active Substance: TEDUGLUTIDE
     Indication: SHORT-BOWEL SYNDROME
     Dosage: 0.05 MG/KG, UNK
     Route: 065
     Dates: start: 20160404, end: 20160911
  38. TEDUGLUTIDE [Suspect]
     Active Substance: TEDUGLUTIDE
     Dosage: 2.8 MILLIGRAM,(0.05MG/KG), QD
     Route: 065
     Dates: start: 20160915, end: 20161107
  39. TEDUGLUTIDE [Suspect]
     Active Substance: TEDUGLUTIDE
     Dosage: 2.8 MILLIGRAM,(0.05MG/KG), QD
     Route: 065
     Dates: start: 20170214, end: 20170220
  40. TEDUGLUTIDE [Suspect]
     Active Substance: TEDUGLUTIDE
     Dosage: 2.6 MILLIGRAM,(0.05MG/KG), QD
     Route: 065
     Dates: start: 20170303, end: 20170411
  41. TEDUGLUTIDE [Suspect]
     Active Substance: TEDUGLUTIDE
     Dosage: 2.6 MILLIGRAM,(0.05MG/KG), QD
     Route: 065
     Dates: start: 20170303, end: 20170411
  42. COUMADINE [Concomitant]
     Active Substance: WARFARIN SODIUM
     Indication: PROPHYLAXIS
     Dosage: 1.50 MILLIGRAM, QD
     Route: 048
     Dates: start: 20191125
  43. LOVENOX [Concomitant]
     Active Substance: ENOXAPARIN SODIUM
     Indication: THROMBOSIS IN DEVICE
  44. TEDUGLUTIDE [Suspect]
     Active Substance: TEDUGLUTIDE
     Indication: SHORT-BOWEL SYNDROME
     Dosage: 0.05 MG/KG, UNK
     Route: 065
     Dates: start: 20160404, end: 20160911
  45. TEDUGLUTIDE [Suspect]
     Active Substance: TEDUGLUTIDE
     Dosage: 0.05 MG/KG, UNK
     Route: 065
     Dates: start: 20170217
  46. TEDUGLUTIDE [Suspect]
     Active Substance: TEDUGLUTIDE
     Dosage: 2.6 MILLIGRAM,(0.05MG/KG), QD
     Route: 065
     Dates: start: 20160909, end: 20160914
  47. TEDUGLUTIDE [Suspect]
     Active Substance: TEDUGLUTIDE
     Dosage: 2.8 MILLIGRAM,(0.05MG/KG), QD
     Route: 065
     Dates: start: 20170412, end: 20181129
  48. TEDUGLUTIDE [Suspect]
     Active Substance: TEDUGLUTIDE
     Dosage: 2.8 MILLIGRAM,(0.05MG/KG), QD
     Route: 065
     Dates: start: 20170412, end: 20181129
  49. TEDUGLUTIDE [Suspect]
     Active Substance: TEDUGLUTIDE
     Dosage: 2.8 MILLIGRAM,(0.05MG/KG), QD
     Route: 065
     Dates: start: 20170412, end: 20181129
  50. TEDUGLUTIDE [Suspect]
     Active Substance: TEDUGLUTIDE
     Dosage: 2.8 MILLIGRAM,(0.05MG/KG), QD
     Route: 065
     Dates: start: 20170412, end: 20181129
  51. TEDUGLUTIDE [Suspect]
     Active Substance: TEDUGLUTIDE
     Dosage: 2.4 MILLIGRAM,(0.05MG/KG), QD
     Route: 065
     Dates: start: 20181130
  52. COLECALCIFEROL [Concomitant]
     Active Substance: CHOLECALCIFEROL
     Indication: SHORT-BOWEL SYNDROME
     Dosage: 100000 INTERNATIONAL UNIT, MONTHLY
     Route: 048
     Dates: start: 20200214
  53. TEDUGLUTIDE [Suspect]
     Active Substance: TEDUGLUTIDE
     Dosage: 2.8 MILLIGRAM,(0.05MG/KG), QD
     Route: 065
     Dates: start: 20160825, end: 20160908
  54. TEDUGLUTIDE [Suspect]
     Active Substance: TEDUGLUTIDE
     Dosage: 2.6 MILLIGRAM,(0.05MG/KG), QD
     Route: 065
     Dates: start: 20160909, end: 20160914
  55. TEDUGLUTIDE [Suspect]
     Active Substance: TEDUGLUTIDE
     Dosage: 2.8 MILLIGRAM,(0.05MG/KG), QD
     Route: 065
     Dates: start: 20160915, end: 20161107
  56. TEDUGLUTIDE [Suspect]
     Active Substance: TEDUGLUTIDE
     Dosage: 2.6 MILLIGRAM,(0.05MG/KG), QD
     Route: 065
     Dates: start: 20161108, end: 20161206

REACTIONS (10)
  - Hypoalbuminaemia [Recovered/Resolved]
  - Lymphangiectasia intestinal [Not Recovered/Not Resolved]
  - Intervertebral disc disorder [Not Recovered/Not Resolved]
  - Arteriosclerosis coronary artery [Not Recovered/Not Resolved]
  - Pneumonia [Recovered/Resolved]
  - Diarrhoea [Not Recovered/Not Resolved]
  - Anaemia [Not Recovered/Not Resolved]
  - Eczema [Not Recovered/Not Resolved]
  - Gastritis [Not Recovered/Not Resolved]
  - Emphysema [Not Recovered/Not Resolved]

NARRATIVE: CASE EVENT DATE: 20161101
